FAERS Safety Report 8265577-7 (Version None)
Quarter: 2012Q2

REPORT INFORMATION
  Report Type: 
  Country: None (occurrence: None)
  Receive Date: 20120406
  Receipt Date: 20120330
  Transmission Date: 20120825
  Serious: No
  Sender: FDA-Public Use
  Company Number: US-PFIZER INC-2012051433

PATIENT
  Sex: Male

DRUGS (15)
  1. SUTENT [Suspect]
     Indication: RENAL CANCER
     Dosage: 50 MG, DAILY
     Route: 048
     Dates: start: 20111122, end: 20120229
  2. NEURONTIN [Concomitant]
     Dosage: 300 MG, 2X/DAY
  3. ZOLOFT [Concomitant]
     Indication: DEPRESSION
     Dosage: 50 MG, Q A.M.
  4. LEVOTHYROXINE [Concomitant]
     Indication: HYPOTHYROIDISM
     Dosage: 100 UG, 1X/DAY
  5. LIVALO [Concomitant]
     Dosage: 2 MG, 1X/DAY
  6. BACTRIM [Concomitant]
     Indication: URINARY TRACT INFECTION
  7. DOCUSATE [Concomitant]
     Dosage: 100 MG, 1X/DAY
  8. COUMADIN [Concomitant]
     Indication: ANTICOAGULANT THERAPY
  9. DULCOLAX [Concomitant]
     Dosage: UNK
  10. TAMBOCOR [Concomitant]
     Dosage: 50 MG, Q 12 H
  11. TRAZODONE [Concomitant]
     Indication: DEPRESSION
     Dosage: 50 MG, AT BED TIME
  12. SUTENT [Suspect]
  13. LYRICA [Concomitant]
     Indication: NEURALGIA
  14. BUMEX [Concomitant]
     Dosage: 1 MG, EVERY OTHER DAY
  15. PROTONIX [Concomitant]
     Dosage: 40 MG, 1X/DAY

REACTIONS (4)
  - STOMATITIS [None]
  - MALAISE [None]
  - PAIN [None]
  - EYELASH DISCOLOURATION [None]
